FAERS Safety Report 9200578 (Version 1)
Quarter: 2013Q1

REPORT INFORMATION
  Report Type: Spontaneous
  Country: US (occurrence: US)
  Receive Date: 20130329
  Receipt Date: 20130329
  Transmission Date: 20140127
  Serious: Yes (Hospitalization)
  Sender: FDA-Public Use
  Company Number: US-PFIZER INC-2004031164

PATIENT
  Age: 45 Year
  Sex: Female
  Weight: 66.22 kg

DRUGS (3)
  1. MOTRIN IB [Suspect]
     Indication: PAIN
     Dosage: 600 MG, EVERY 4 HRS
     Dates: start: 20040312, end: 20040501
  2. MOTRIN IB [Suspect]
     Dosage: UNK
     Dates: start: 20040411, end: 20040501
  3. VICODIN [Concomitant]
     Dosage: AMOUNT UNSPECIFIED
     Route: 048
     Dates: start: 20040312, end: 20040412

REACTIONS (2)
  - Hypersensitivity [Recovered/Resolved]
  - Erythema multiforme [Recovered/Resolved]
